FAERS Safety Report 5692206-9 (Version None)
Quarter: 2008Q2

REPORT INFORMATION
  Report Type: 
  Country: None (occurrence: None)
  Receive Date: 20080402
  Receipt Date: 20080324
  Transmission Date: 20081010
  Serious: Yes (Hospitalization)
  Sender: FDA-Public Use
  Company Number: IN-PFIZER INC-2008025035

PATIENT
  Age: 50 Year
  Sex: Male

DRUGS (2)
  1. MAGNEX [Suspect]
     Indication: LUNG INFECTION
     Route: 042
  2. AMIKACIN [Concomitant]
     Route: 042

REACTIONS (1)
  - INTERNATIONAL NORMALISED RATIO INCREASED [None]
